FAERS Safety Report 13509087 (Version 1)
Quarter: 2017Q2

REPORT INFORMATION
  Report Type: Spontaneous
  Country: US (occurrence: US)
  Receive Date: 20170503
  Receipt Date: 20170503
  Transmission Date: 20170830
  Serious: No
  Sender: FDA-Public Use
  Company Number: US-ASTRAZENECA-2016SF29961

PATIENT
  Age: 856 Month
  Sex: Male
  Weight: 97.5 kg

DRUGS (1)
  1. BYDUREON [Suspect]
     Active Substance: EXENATIDE
     Indication: DIABETES MELLITUS
     Route: 058
     Dates: start: 201609

REACTIONS (1)
  - Injection site nodule [Recovering/Resolving]

NARRATIVE: CASE EVENT DATE: 201610
